FAERS Safety Report 7116126-8 (Version None)
Quarter: 2010Q4

REPORT INFORMATION
  Report Type: 
  Country: None (occurrence: None)
  Receive Date: 20101122
  Receipt Date: 20101109
  Transmission Date: 20110411
  Serious: Yes (Hospitalization)
  Sender: FDA-Public Use
  Company Number: PHHY2010CA76109

PATIENT
  Sex: Female

DRUGS (1)
  1. ALISKIREN ALI+ [Suspect]

REACTIONS (1)
  - PANCREATITIS [None]
